FAERS Safety Report 19493484 (Version 2)
Quarter: 2021Q3

REPORT INFORMATION
  Report Type: Spontaneous
  Country: US (occurrence: US)
  Receive Date: 20210705
  Receipt Date: 20210831
  Transmission Date: 20211014
  Serious: No
  Sender: FDA-Public Use
  Company Number: US-ASTRAZENECA-2021A515841

PATIENT
  Age: 29502 Day
  Sex: Female
  Weight: 90.4 kg

DRUGS (1)
  1. FARXIGA [Suspect]
     Active Substance: DAPAGLIFLOZIN PROPANEDIOL
     Indication: DIABETES MELLITUS
     Route: 048
     Dates: start: 20191105, end: 20210420

REACTIONS (2)
  - Urinary tract infection [Recovered/Resolved]
  - Vulvovaginal pruritus [Unknown]

NARRATIVE: CASE EVENT DATE: 20191122
